FAERS Safety Report 5507533-5 (Version None)
Quarter: 2007Q4

REPORT INFORMATION
  Report Type: 
  Country: None (occurrence: None)
  Receive Date: 20071105
  Receipt Date: 20071105
  Transmission Date: 20080405
  Serious: Yes (Life-Threatening, Hospitalization)
  Sender: FDA-Public Use
  Company Number: None

PATIENT
  Age: 59 Year
  Sex: Female
  Weight: 60.3284 kg

DRUGS (1)
  1. COPAXONE [Suspect]
     Indication: MULTIPLE SCLEROSIS
     Dosage: 1 CC  DAILY  SQ
     Route: 058
     Dates: start: 20010604, end: 20030707

REACTIONS (3)
  - FALL [None]
  - SKULL FRACTURE [None]
  - SURGICAL FAILURE [None]
